FAERS Safety Report 5902326-9 (Version None)
Quarter: 2008Q3

REPORT INFORMATION
  Report Type: 
  Country: None (occurrence: None)
  Receive Date: 20080929
  Receipt Date: 20080912
  Transmission Date: 20090109
  Serious: No
  Sender: FDA-Public Use
  Company Number: US-B.I. PHARMACEUTICALS,INC./RIDGEFIELD-2008-BP-04881BP

PATIENT
  Sex: Female

DRUGS (9)
  1. SPIRIVA [Suspect]
     Indication: CHRONIC OBSTRUCTIVE PULMONARY DISEASE
     Dates: start: 20070101
  2. SPIRIVA [Suspect]
     Indication: ASTHMA
  3. SPIRIVA [Suspect]
     Indication: EMPHYSEMA
  4. SPIRIVA [Suspect]
     Indication: BRONCHITIS CHRONIC
  5. SPIRIVA [Suspect]
     Indication: DYSPNOEA
  6. ALBUTEROL SULFATE [Concomitant]
     Indication: DYSPNOEA
  7. FORADIL [Concomitant]
     Indication: DYSPNOEA
  8. OTHER PRESCRIPTION MEDICATION [Concomitant]
     Indication: DYSPNOEA
  9. ATROVENT HFA [Concomitant]
     Indication: DYSPNOEA

REACTIONS (2)
  - DRY MOUTH [None]
  - UNEVALUABLE EVENT [None]
